FAERS Safety Report 23129256 (Version 2)
Quarter: 2023Q4

REPORT INFORMATION
  Report Type: Spontaneous
  Country: US (occurrence: US)
  Receive Date: 20231031
  Receipt Date: 20231226
  Transmission Date: 20240109
  Serious: Yes (Death, Other)
  Sender: FDA-Public Use
  Company Number: US-AMGEN-USASP2023192836

PATIENT

DRUGS (2)
  1. EPOETIN ALFA [Suspect]
     Active Substance: ERYTHROPOIETIN
     Indication: Anaemia
     Dosage: 450-1050 IU/KG, Q1W, MORE THAN EQUAL TO 24 WEEKS
     Route: 065
  2. LUSPATERCEPT [Concomitant]
     Active Substance: LUSPATERCEPT
     Dosage: 1.0-1.75 MILLIGRAM/KILOGRAM, Q3WK
     Route: 058

REACTIONS (3)
  - Death [Fatal]
  - Acute myeloid leukaemia [Unknown]
  - Adverse event [Unknown]
